FAERS Safety Report 15716464 (Version 1)
Quarter: 2018Q4

REPORT INFORMATION
  Report Type: Report from Study
  Country: IT (occurrence: IT)
  Receive Date: 20181213
  Receipt Date: 20181213
  Transmission Date: 20190205
  Serious: Yes (Hospitalization)
  Sender: FDA-Public Use
  Company Number: IT-TEVA-2018-IT-987873

PATIENT
  Age: 91 Year
  Sex: Female

DRUGS (8)
  1. AMOXICILLINA/ACIDO CLAVULANICO [Suspect]
     Active Substance: AMOXICILLIN\CLAVULANIC ACID
     Indication: BRONCHITIS BACTERIAL
     Dosage: 2 DOSAGE FORMS DAILY;
     Route: 048
     Dates: start: 20180616, end: 20180619
  2. ATORVASTATIN [Concomitant]
     Active Substance: ATORVASTATIN
  3. LANTUS [Concomitant]
     Active Substance: INSULIN GLARGINE
  4. XARELTO [Concomitant]
     Active Substance: RIVAROXABAN
  5. FERRO-GRAD [Concomitant]
     Active Substance: FERROUS SULFATE
  6. CATAPRESAN TTS-2 5 MG CEROTTI TRANSDERMICI [Concomitant]
  7. TRAJENTA 5?MG FILM-COATED TABLETS [Concomitant]
  8. ALIFLUS DISKUS 50 MICROGRAMMI/500 MICROGRAMMI/DOSE DI POLVERE PER INAL [Concomitant]
     Route: 065

REACTIONS (3)
  - Dehydration [Recovered/Resolved]
  - Clostridium difficile infection [Recovered/Resolved]
  - Clostridium difficile colitis [Recovered/Resolved]

NARRATIVE: CASE EVENT DATE: 20180619
